FAERS Safety Report 23335688 (Version 1)
Quarter: 2023Q4

REPORT INFORMATION
  Report Type: Spontaneous
  Country: PL (occurrence: PL)
  Receive Date: 20231225
  Receipt Date: 20231225
  Transmission Date: 20240110
  Serious: Yes (Death)
  Sender: FDA-Public Use
  Company Number: None

PATIENT
  Age: 91 Year
  Sex: Female
  Weight: 35 kg

DRUGS (2)
  1. DEXAMETHASONE [Suspect]
     Active Substance: DEXAMETHASONE
     Indication: Bronchitis
     Route: 042
     Dates: start: 20231017, end: 20231026
  2. CEFUROXIME SODIUM [Concomitant]
     Active Substance: CEFUROXIME SODIUM
     Indication: Product used for unknown indication

REACTIONS (10)
  - Wound [Fatal]
  - Skin atrophy [Fatal]
  - Screaming [Fatal]
  - Decubitus ulcer [Fatal]
  - Impaired healing [Fatal]
  - Mood altered [Fatal]
  - Circulatory collapse [Fatal]
  - Arteriosclerosis [Fatal]
  - Arthritis [Fatal]
  - Ecchymosis [Fatal]
